FAERS Safety Report 8361200-1 (Version None)
Quarter: 2012Q2

REPORT INFORMATION
  Report Type: 
  Country: None (occurrence: None)
  Receive Date: 20120515
  Receipt Date: 20110718
  Transmission Date: 20120825
  Serious: No
  Sender: FDA-Public Use
  Company Number: US-ALEXION-A201101088

PATIENT
  Sex: Female

DRUGS (8)
  1. SOLIRIS [Suspect]
     Dosage: 900 MG Q2W
     Route: 042
  2. SOLIRIS [Suspect]
     Dosage: 600 MG QW
     Route: 042
     Dates: start: 20110601
  3. ZOFRAN [Concomitant]
  4. LOMOTIL [Concomitant]
  5. PERCOCET [Concomitant]
  6. SOLIRIS [Suspect]
     Indication: PAROXYSMAL NOCTURNAL HAEMOGLOBINURIA
     Dosage: UNK
     Route: 042
     Dates: end: 20101201
  7. NORCO [Concomitant]
     Dosage: UNK PRN
     Route: 048
  8. LOVENOX [Concomitant]
     Dosage: 140 MG QD
     Route: 058

REACTIONS (1)
  - OEDEMA [None]
